FAERS Safety Report 9205342 (Version 1)
Quarter: 2013Q2

REPORT INFORMATION
  Report Type: Spontaneous
  Country: US (occurrence: US)
  Receive Date: 20130402
  Receipt Date: 20130402
  Transmission Date: 20140414
  Serious: Yes (Hospitalization)
  Sender: FDA-Public Use
  Company Number: US-B.I. PHARMACEUTICALS,INC./RIDGEFIELD-2013-BI-08385BP

PATIENT
  Age: 63 Year
  Sex: Female

DRUGS (5)
  1. SPIRIVA [Suspect]
     Indication: CHRONIC OBSTRUCTIVE PULMONARY DISEASE
     Dosage: 18 MCG
     Route: 055
  2. SPIRIVA [Suspect]
     Indication: EMPHYSEMA
  3. PROVENTIL [Concomitant]
     Indication: ASTHMA
     Route: 055
  4. ADVAIR [Concomitant]
     Indication: CHRONIC OBSTRUCTIVE PULMONARY DISEASE
     Route: 055
  5. ADVAIR [Concomitant]
     Indication: ASTHMA

REACTIONS (2)
  - Pneumothorax [Recovered/Resolved]
  - Emphysema [Recovered/Resolved]
